FAERS Safety Report 8382938 (Version 4)
Quarter: 2013Q1

REPORT INFORMATION
  Report Type: Spontaneous
  Country: US (occurrence: US)
  Receive Date: 20120130
  Receipt Date: 20130108
  Transmission Date: 20140127
  Serious: Yes (Hospitalization)
  Sender: FDA-Public Use
  Company Number: US-ACTELION-A-US2011-58559

PATIENT
  Age: 51 Year
  Sex: Female

DRUGS (2)
  1. TRACLEER [Suspect]
     Indication: PULMONARY ARTERIAL HYPERTENSION
     Dosage: UNK
     Route: 048
     Dates: start: 20100201
  2. REVATIO [Concomitant]

REACTIONS (12)
  - Pulmonary oedema [Unknown]
  - Constipation [Unknown]
  - Pulmonary arterial pressure increased [Unknown]
  - Pleural effusion [Unknown]
  - Fluid retention [Unknown]
  - Pulmonary function test decreased [Unknown]
  - Feeling cold [Unknown]
  - Infection [Unknown]
  - Exercise tolerance decreased [Unknown]
  - Fatigue [Unknown]
  - Oedema [Unknown]
  - Dyspnoea [Unknown]
